FAERS Safety Report 9376543 (Version 2)
Quarter: 2013Q3

REPORT INFORMATION
  Report Type: Spontaneous
  Country: US (occurrence: US)
  Receive Date: 20130701
  Receipt Date: 20130726
  Transmission Date: 20140515
  Serious: Yes (Hospitalization)
  Sender: FDA-Public Use
  Company Number: US-JNJFOC-20130613975

PATIENT
  Age: 39 Year
  Sex: Female
  Weight: 77.11 kg

DRUGS (3)
  1. XARELTO [Suspect]
     Indication: EMBOLISM VENOUS
     Route: 048
     Dates: start: 20130522, end: 20130528
  2. CENTRUM NOS [Concomitant]
     Dosage: 0.4 MG - 162 MG-18 MG TABLET
     Route: 048
  3. ALDARA CREAM 5% [Concomitant]
     Dosage: 5% -1 CREAM IN PACKET - EVERY OTHER DAY, APPLY 3 TIMES, MONDAY/WEDNESDAY/FRIDAY
     Route: 061

REACTIONS (1)
  - Venous thrombosis [Recovered/Resolved]
